FAERS Safety Report 24155109 (Version 1)
Quarter: 2024Q3

REPORT INFORMATION
  Report Type: Spontaneous
  Country: JP (occurrence: JP)
  Receive Date: 20240731
  Receipt Date: 20240731
  Transmission Date: 20241016
  Serious: Yes (Death, Other)
  Sender: Carnegie Pharmaceuticals
  Company Number: JP-CARNEGIE-000015

PATIENT
  Age: 79 Year
  Sex: Female

DRUGS (12)
  1. DENOSUMAB [Suspect]
     Active Substance: DENOSUMAB
     Indication: Breast cancer
     Route: 065
  2. PALBOCICLIB [Suspect]
     Active Substance: PALBOCICLIB
     Indication: Breast cancer
     Route: 065
  3. PALBOCICLIB [Suspect]
     Active Substance: PALBOCICLIB
     Indication: Breast cancer
     Route: 065
  4. ETHINYL ESTRADIOL [Suspect]
     Active Substance: ETHINYL ESTRADIOL
     Indication: Metastases to liver
     Dosage: 1.5 MG/DAY
     Route: 065
  5. ETHINYL ESTRADIOL [Suspect]
     Active Substance: ETHINYL ESTRADIOL
     Indication: Metastases to liver
     Dosage: 0.5 MG/DAY
     Route: 065
  6. ETHINYL ESTRADIOL [Suspect]
     Active Substance: ETHINYL ESTRADIOL
     Indication: Metastases to lung
     Dosage: 1.5 MG/DAY
     Route: 065
  7. ETHINYL ESTRADIOL [Suspect]
     Active Substance: ETHINYL ESTRADIOL
     Indication: Metastases to lung
     Dosage: 0.5 MG/DAY
     Route: 065
  8. ETHINYL ESTRADIOL [Suspect]
     Active Substance: ETHINYL ESTRADIOL
     Indication: Metastases to spleen
     Dosage: 1.5 MG/DAY
     Route: 065
  9. ETHINYL ESTRADIOL [Suspect]
     Active Substance: ETHINYL ESTRADIOL
     Indication: Metastases to spleen
     Dosage: 0.5 MG/DAY
     Route: 065
  10. LETROZOLE [Suspect]
     Active Substance: LETROZOLE
     Indication: Breast cancer
     Route: 065
  11. LETROZOLE [Suspect]
     Active Substance: LETROZOLE
     Indication: Breast cancer
     Route: 065
  12. LETROZOLE [Suspect]
     Active Substance: LETROZOLE
     Indication: Breast cancer
     Route: 065

REACTIONS (11)
  - Metastases to liver [Fatal]
  - Metastases to lung [Unknown]
  - Metastases to spleen [Unknown]
  - Condition aggravated [Unknown]
  - Disease progression [Unknown]
  - Cardiac failure [Unknown]
  - Osteonecrosis of jaw [Unknown]
  - Malignant pleural effusion [Unknown]
  - Oedema peripheral [Unknown]
  - Decreased appetite [Unknown]
  - Diarrhoea [Unknown]
